FAERS Safety Report 8577324-X (Version None)
Quarter: 2012Q3

REPORT INFORMATION
  Report Type: 
  Country: None (occurrence: None)
  Receive Date: 20120807
  Receipt Date: 20120802
  Transmission Date: 20120928
  Serious: Yes (Other)
  Sender: FDA-Public Use
  Company Number: US-009507513-1208USA001350

PATIENT

DRUGS (1)
  1. FOSAMAX [Suspect]
     Dosage: UNK

REACTIONS (4)
  - FOOT FRACTURE [None]
  - ANKLE FRACTURE [None]
  - FEMUR FRACTURE [None]
  - OSTEONECROSIS OF JAW [None]
